FAERS Safety Report 21067254 (Version 3)
Quarter: 2022Q4

REPORT INFORMATION
  Report Type: Report from Study
  Country: JP (occurrence: JP)
  Receive Date: 20220712
  Receipt Date: 20221006
  Transmission Date: 20230113
  Serious: Yes (Hospitalization, Other)
  Sender: FDA-Public Use
  Company Number: JP-ORPHANEU-2021002665

PATIENT

DRUGS (8)
  1. PASIREOTIDE [Suspect]
     Active Substance: PASIREOTIDE
     Indication: Pituitary-dependent Cushing^s syndrome
     Dosage: 10 MILLIGRAM
     Route: 030
     Dates: start: 20191021, end: 20200527
  2. PASIREOTIDE [Suspect]
     Active Substance: PASIREOTIDE
     Dosage: 30 MILLIGRAM
     Route: 030
     Dates: start: 20200528, end: 20200729
  3. PASIREOTIDE [Suspect]
     Active Substance: PASIREOTIDE
     Dosage: 20 MILLIGRAM
     Route: 030
     Dates: start: 20200730, end: 20210303
  4. PASIREOTIDE [Suspect]
     Active Substance: PASIREOTIDE
     Dosage: 30 MILLIGRAM
     Route: 030
     Dates: start: 20210304, end: 20210401
  5. PASIREOTIDE [Suspect]
     Active Substance: PASIREOTIDE
     Dosage: 10 MILLIGRAM
     Route: 030
     Dates: start: 20220224
  6. CORTRIL [Concomitant]
     Active Substance: HYDROCORTISONE
     Indication: Pituitary-dependent Cushing^s syndrome
     Dosage: 10 MILLIGRAM PER A DAY
     Route: 048
  7. CORTRIL [Concomitant]
     Active Substance: HYDROCORTISONE
     Dosage: 15 MILLIGRAM PER A DAY
     Route: 048
     Dates: start: 20210305
  8. DECADRON [Concomitant]
     Active Substance: DEXAMETHASONE
     Indication: Pituitary-dependent Cushing^s syndrome
     Dosage: 0.5 MILLIGRAM PER A DAY
     Route: 048

REACTIONS (1)
  - Cholecystitis acute [Recovered/Resolved]

NARRATIVE: CASE EVENT DATE: 20210703
